FAERS Safety Report 8268779-9 (Version None)
Quarter: 2012Q2

REPORT INFORMATION
  Report Type: 
  Country: None (occurrence: None)
  Receive Date: 20120409
  Receipt Date: 20120409
  Transmission Date: 20120825
  Serious: No
  Sender: FDA-Public Use
  Company Number: None

PATIENT
  Age: 6 Year
  Sex: Female
  Weight: 25.401 kg

DRUGS (1)
  1. OVIDE [Suspect]
     Indication: LICE INFESTATION
     Dosage: ONE APPLICATION
     Route: 061

REACTIONS (3)
  - CHEMICAL INJURY [None]
  - APPLICATION SITE BURN [None]
  - BURNS SECOND DEGREE [None]
